FAERS Safety Report 7401288 (Version 3)
Quarter: 2012Q4

REPORT INFORMATION
  Report Type: 
  Country: US (occurrence: US)
  Receive Date: 20100527
  Receipt Date: 20121012
  Transmission Date: 20130627
  Serious: Yes (Hospitalization, Other)
  Sender: FDA-Public Use
  Company Number: US-BAYER-201023240NA

PATIENT
  Age: 30 Year
  Sex: Female
  Weight: 78.46 kg

DRUGS (2)
  1. YAZ [Suspect]
     Indication: ACNE
     Dosage: UNK
     Route: 048
     Dates: start: 200702, end: 200812
  2. ADVIL [Concomitant]
     Indication: HEADACHE
     Dosage: 400 mg, PRN for 2 weeks
     Route: 048
     Dates: start: 20081201

REACTIONS (4)
  - Carotid artery thrombosis [None]
  - Cerebrovascular accident [None]
  - Pain [Unknown]
  - Injury [Unknown]
